FAERS Safety Report 11130316 (Version 1)
Quarter: 2015Q2

REPORT INFORMATION
  Report Type: Report from Study
  Country: BR (occurrence: BR)
  Receive Date: 20150522
  Receipt Date: 20150522
  Transmission Date: 20150821
  Serious: Yes (Other)
  Sender: FDA-Public Use
  Company Number: ALCN2015BR003134

PATIENT
  Age: 95 Year
  Sex: Female
  Weight: 60 kg

DRUGS (5)
  1. DUOTRAV [BAC] [Suspect]
     Active Substance: TIMOLOL\TRAVOPROST
     Indication: INTRAOCULAR PRESSURE INCREASED
     Dosage: 1 DF, QD
     Route: 047
  2. VIGAMOX [Concomitant]
     Active Substance: MOXIFLOXACIN HYDROCHLORIDE
     Indication: POSTOPERATIVE CARE
     Dosage: 1 DF, PRN
     Route: 047
     Dates: end: 20150513
  3. MYDRIACYL [Concomitant]
     Active Substance: TROPICAMIDE
     Indication: POSTOPERATIVE CARE
     Dosage: 1 DF, PRN
     Route: 047
     Dates: end: 20150513
  4. CETROLAC [Concomitant]
     Indication: POSTOPERATIVE CARE
     Dosage: 1 DF, PRN
     Route: 047
     Dates: end: 20150513
  5. MAXIDEX OPHTHALMIC//DEXAMETHASONE [Concomitant]
     Indication: POSTOPERATIVE CARE
     Dosage: 1 DF, PRN
     Route: 047
     Dates: end: 20150513

REACTIONS (1)
  - Cataract [Recovered/Resolved]
